FAERS Safety Report 11216797 (Version 4)
Quarter: 2015Q3

REPORT INFORMATION
  Report Type: Spontaneous
  Country: US (occurrence: US)
  Receive Date: 20150624
  Receipt Date: 20150803
  Transmission Date: 20151125
  Serious: Yes (Life-Threatening, Hospitalization)
  Sender: FDA-Public Use
  Company Number: US-LPDUSPRD-20150457

PATIENT
  Age: 55 Year
  Sex: Male
  Weight: 96.3 kg

DRUGS (18)
  1. SALINE [Suspect]
     Active Substance: SODIUM CHLORIDE
     Dosage: SEE NARRATIVE FOR SETTINGS
     Route: 010
  2. BYSTOLIC [Concomitant]
     Active Substance: NEBIVOLOL HYDROCHLORIDE
     Route: 065
  3. CRESTOR [Concomitant]
     Active Substance: ROSUVASTATIN CALCIUM
     Route: 065
  4. DIOVAN [Concomitant]
     Active Substance: VALSARTAN
     Route: 065
  5. FRESENIUS 2008T HEMODIALYSIS SYSTEM [Suspect]
     Active Substance: DEVICE
     Dosage: SEE NARRATIVE FOR SETTINGS
     Route: 010
  6. TRICOR [Concomitant]
     Active Substance: FENOFIBRATE
     Route: 065
  7. VENOFER [Suspect]
     Active Substance: IRON SUCROSE
     Dosage: 100 MG IVP 3X^S/WEEK
     Route: 040
     Dates: start: 201408, end: 20150504
  8. GRANUFLO [Suspect]
     Active Substance: ACETIC ACID\SODIUM ACETATE
     Dosage: SEE NARRATIVE FOR SETTINGS
     Route: 010
  9. LANTUS [Concomitant]
     Active Substance: INSULIN GLARGINE
     Route: 065
  10. FRESENIUS DIALYZER [Suspect]
     Active Substance: DEVICE
     Dosage: SEE NARRATIVE FOR SETTINGS
     Route: 010
  11. K-DUR [Concomitant]
     Active Substance: POTASSIUM CHLORIDE
     Route: 065
  12. LASIX [Concomitant]
     Active Substance: FUROSEMIDE
     Route: 065
  13. FRESENIUS BLOODLINES [Suspect]
     Active Substance: DEVICE
     Dosage: SEE NARRATIVE FOR SETTINGS
     Route: 010
  14. CALCITROL [Concomitant]
     Active Substance: CALCITRIOL
     Dosage: DOSE NOT PROVIDED
     Route: 065
  15. CARDIZEM LA [Concomitant]
     Active Substance: DILTIAZEM HYDROCHLORIDE
     Route: 065
  16. NATURALYTE [Suspect]
     Active Substance: ACETIC ACID\SODIUM ACETATE
     Dosage: SEE NARRATIVE FOR SETTINGS
     Route: 010
  17. EPOGEN [Concomitant]
     Active Substance: ERYTHROPOIETIN
     Dosage: DOSE NOT PROVIDED
     Route: 065
  18. HEPARIN [Concomitant]
     Active Substance: HEPARIN SODIUM
     Dosage: DOSE NOT PROVIDED
     Route: 065

REACTIONS (8)
  - Pneumonia aspiration [Unknown]
  - Acute myocardial infarction [Unknown]
  - Respiratory arrest [Unknown]
  - Hypokalaemia [Unknown]
  - Atrial fibrillation [Unknown]
  - Hypoxia [Unknown]
  - Cardiac arrest [Unknown]
  - Seizure [Unknown]

NARRATIVE: CASE EVENT DATE: 20150504
